FAERS Safety Report 22303136 (Version 1)
Quarter: 2023Q2

REPORT INFORMATION
  Report Type: Spontaneous
  Country: US (occurrence: US)
  Receive Date: 20230510
  Receipt Date: 20230510
  Transmission Date: 20230721
  Serious: Yes (Other)
  Sender: FDA-Public Use
  Company Number: US-PERRIGO-23US005518

PATIENT

DRUGS (1)
  1. ASPIRIN [Suspect]
     Active Substance: ASPIRIN
     Indication: Accidental exposure to product
     Dosage: UNKNOWN
     Route: 055
     Dates: start: 202305, end: 202305

REACTIONS (2)
  - Loss of consciousness [Recovered/Resolved]
  - Reaction to excipient [Recovered/Resolved]

NARRATIVE: CASE EVENT DATE: 20230501
